FAERS Safety Report 15285920 (Version 2)
Quarter: 2018Q3

REPORT INFORMATION
  Report Type: Spontaneous
  Country: US (occurrence: US)
  Receive Date: 20180816
  Receipt Date: 20180909
  Transmission Date: 20181010
  Serious: No
  Sender: FDA-Public Use
  Company Number: US-JNJFOC-20180721984

PATIENT
  Age: 79 Year
  Sex: Female
  Weight: 58.06 kg

DRUGS (4)
  1. TYLENOL EXTRA STRENGTH [Suspect]
     Active Substance: ACETAMINOPHEN
     Indication: SPINAL PAIN
     Dosage: TWO TABLETS, TWO TO THREE TIMES DAILY
     Route: 048
     Dates: start: 20180620
  2. TYLENOL EXTRA STRENGTH [Suspect]
     Active Substance: ACETAMINOPHEN
     Indication: ARTHRALGIA
     Dosage: TWO TABLETS, TWO TO THREE TIMES DAILY
     Route: 048
     Dates: start: 20180620
  3. TYLENOL EXTRA STRENGTH [Suspect]
     Active Substance: ACETAMINOPHEN
     Indication: NEURALGIA
     Dosage: TWO TABLETS, TWO TO THREE TIMES DAILY
     Route: 048
     Dates: start: 20180620
  4. TYLENOL EXTRA STRENGTH [Suspect]
     Active Substance: ACETAMINOPHEN
     Indication: PAIN IN EXTREMITY
     Dosage: TWO TABLETS, TWO TO THREE TIMES DAILY
     Route: 048
     Dates: start: 20180620

REACTIONS (2)
  - Product use in unapproved indication [Unknown]
  - Therapeutic response unexpected [Unknown]

NARRATIVE: CASE EVENT DATE: 20180620
